FAERS Safety Report 21864977 (Version 1)
Quarter: 2023Q1

REPORT INFORMATION
  Report Type: Report from Study
  Country: US (occurrence: US)
  Receive Date: 20230116
  Receipt Date: 20230116
  Transmission Date: 20230417
  Serious: No
  Sender: FDA-Public Use
  Company Number: US-ABBVIE-4270406

PATIENT
  Sex: Female
  Weight: 68.038 kg

DRUGS (7)
  1. HUMIRA [Suspect]
     Active Substance: ADALIMUMAB
     Indication: Rheumatoid arthritis
     Route: 058
     Dates: start: 20220214, end: 202209
  2. HUMIRA [Suspect]
     Active Substance: ADALIMUMAB
     Indication: Crohn^s disease
     Route: 058
     Dates: start: 202209
  3. LISINOPRIL [Concomitant]
     Active Substance: LISINOPRIL
     Indication: Hypertension
  4. LASIX [Concomitant]
     Active Substance: FUROSEMIDE
     Indication: Fluid retention
  5. PROTONIX [Concomitant]
     Active Substance: PANTOPRAZOLE SODIUM
     Indication: Gastrooesophageal reflux disease
  6. ZYRTEC [Concomitant]
     Active Substance: CETIRIZINE HYDROCHLORIDE
     Indication: Hypersensitivity
  7. LYRICA [Concomitant]
     Active Substance: PREGABALIN
     Indication: Neuralgia

REACTIONS (3)
  - Crohn^s disease [Recovered/Resolved]
  - Therapeutic response shortened [Recovered/Resolved]
  - Unevaluable event [Recovered/Resolved]
